FAERS Safety Report 23288002 (Version 1)
Quarter: 2023Q4

REPORT INFORMATION
  Report Type: Report from Study
  Country: BE (occurrence: BE)
  Receive Date: 20231212
  Receipt Date: 20231212
  Transmission Date: 20240110
  Serious: Yes (Other)
  Sender: FDA-Public Use
  Company Number: BE-Vifor Pharma-VIT-2023-09690

PATIENT
  Age: 74 Year
  Sex: Male
  Weight: 103 kg

DRUGS (11)
  1. KORSUVA [Suspect]
     Active Substance: DIFELIKEFALIN ACETATE
     Indication: Uraemic pruritus
     Dosage: 3XSEM, 1 ML OF VIAL (50 MCG, 3 IN 1 WK)
     Route: 042
     Dates: start: 20231120, end: 20231122
  2. BISOPROLOL [Concomitant]
     Active Substance: BISOPROLOL\BISOPROLOL FUMARATE
  3. ASPIRIN [Concomitant]
     Active Substance: ASPIRIN
  4. ATARAX [Concomitant]
     Active Substance: HYDROXYZINE HYDROCHLORIDE
  5. BILASTINE [Concomitant]
     Active Substance: BILASTINE
  6. CLOPIDOGREL [Concomitant]
     Active Substance: CLOPIDOGREL BISULFATE
  7. LASIX [Concomitant]
     Active Substance: FUROSEMIDE
  8. RUXOLITINIB [Concomitant]
     Active Substance: RUXOLITINIB
  9. PANTOMED [Concomitant]
  10. RENEPHO [Concomitant]
  11. TAMSULOSINEHO [Concomitant]

REACTIONS (5)
  - Hypotension [Recovered/Resolved]
  - Loss of consciousness [Recovered/Resolved]
  - Vertigo [Recovered/Resolved]
  - Dizziness [Recovered/Resolved]
  - Nausea [Recovered/Resolved]

NARRATIVE: CASE EVENT DATE: 20231120
